FAERS Safety Report 21501713 (Version 6)
Quarter: 2023Q1

REPORT INFORMATION
  Report Type: Report from Study
  Country: PT (occurrence: PT)
  Receive Date: 20221025
  Receipt Date: 20230123
  Transmission Date: 20230417
  Serious: Yes (Other)
  Sender: FDA-Public Use
  Company Number: PT-ABBVIE-4172272

PATIENT
  Age: 76 Year
  Sex: Female

DRUGS (10)
  1. CARBIDOPA\LEVODOPA [Suspect]
     Active Substance: CARBIDOPA\LEVODOPA
     Indication: Parkinson^s disease
     Dosage: 20 MG + 5 MG (PEG)?MORN:13CC;MAINT:5.0CC/H;EXTRA:3CC
     Route: 050
     Dates: start: 202212, end: 20230116
  2. CARBIDOPA\LEVODOPA [Suspect]
     Active Substance: CARBIDOPA\LEVODOPA
     Dosage: 20 MG + 5 MG (VIA PEG)
     Route: 050
     Dates: start: 20230116
  3. CARBIDOPA\LEVODOPA [Suspect]
     Active Substance: CARBIDOPA\LEVODOPA
     Dosage: 20 MG + 5 MG (VIA PEG), MORN:13.5CC;MAINT:5.7CC/H;EXTRA:3CC?FIRST ADMIN DATE- AUG 2022
     Route: 050
  4. CARBIDOPA\LEVODOPA [Suspect]
     Active Substance: CARBIDOPA\LEVODOPA
     Dosage: 20 MG + 5 MG, MORN:13.5CC;MAINT:5.7CC/H;EXTRA:3CC.?LAST ADMIN DATE- JUN 2022
     Route: 050
     Dates: start: 20220614
  5. CARBIDOPA\LEVODOPA [Suspect]
     Active Substance: CARBIDOPA\LEVODOPA
     Dosage: 20 MG + 5 MG, MORN:7CC;MAINT:3.3CC/H;EXTRA:1CC.
     Route: 050
     Dates: start: 20220613, end: 20220613
  6. CARBIDOPA\LEVODOPA [Suspect]
     Active Substance: CARBIDOPA\LEVODOPA
     Dosage: 20 MG + 5 MG, MORN:12CC;MAINT:3.3CC/H;EXTRA:1CC?FIRST ADMIN DATE- 2022
     Route: 050
     Dates: start: 2022
  7. CARBIDOPA\LEVODOPA [Suspect]
     Active Substance: CARBIDOPA\LEVODOPA
     Dosage: 20 MG + 5 MG (VIA PEG)
     Route: 050
     Dates: start: 202208, end: 202212
  8. CYANOCOBALAMIN [Concomitant]
     Active Substance: CYANOCOBALAMIN
     Indication: Product used for unknown indication
     Dosage: 1 TABLET IN MG, AT 1 PM.
     Route: 048
     Dates: start: 2022
  9. folic acid 5 Milligram [Concomitant]
     Indication: Product used for unknown indication
     Dosage: 1 TABLET AT 1 PM
     Route: 048
  10. BENSERAZIDE HYDROCHLORIDE\LEVODOPA [Concomitant]
     Active Substance: BENSERAZIDE HYDROCHLORIDE\LEVODOPA
     Indication: Parkinson^s disease
     Dosage: 1 TABLET, AT BEDTIME PRODUCT.?STARTED AFTER DUODOPA
     Route: 048
     Dates: start: 2022

REACTIONS (10)
  - General physical health deterioration [Recovering/Resolving]
  - Gait inability [Not Recovered/Not Resolved]
  - Knee deformity [Not Recovered/Not Resolved]
  - Hypophagia [Recovering/Resolving]
  - Loss of personal independence in daily activities [Not Recovered/Not Resolved]
  - Decubitus ulcer [Recovering/Resolving]
  - Muscle atrophy [Not Recovered/Not Resolved]
  - Orthostatic hypotension [Not Recovered/Not Resolved]
  - Weight decreased [Unknown]
  - General physical condition abnormal [Not Recovered/Not Resolved]

NARRATIVE: CASE EVENT DATE: 20220901
